FAERS Safety Report 25623542 (Version 1)
Quarter: 2025Q3

REPORT INFORMATION
  Report Type: Spontaneous
  Country: US (occurrence: US)
  Receive Date: 20250730
  Receipt Date: 20250730
  Transmission Date: 20251021
  Serious: No
  Sender: RANBAXY
  Company Number: US-MIMS-SUN-2025-USA-55107

PATIENT
  Sex: Male

DRUGS (1)
  1. TRETINOIN [Suspect]
     Active Substance: TRETINOIN
     Indication: Acne
     Dosage: UNK, QD
     Route: 061

REACTIONS (2)
  - Product dose omission issue [Unknown]
  - Product quality issue [Unknown]
